FAERS Safety Report 5455719-0 (Version None)
Quarter: 2007Q3

REPORT INFORMATION
  Report Type: 
  Country: None (occurrence: None)
  Receive Date: 20070914
  Receipt Date: 20070905
  Transmission Date: 20080115
  Serious: Yes (Other)
  Sender: FDA-Public Use
  Company Number: 07-001769

PATIENT
  Age: 48 Year
  Sex: Female
  Weight: 52.2 kg

DRUGS (2)
  1. LOESTRIN 24 FE [Suspect]
     Indication: CONTRACEPTION
     Dosage: 20/1000UG, QD, ORAL
     Route: 048
     Dates: start: 20070803
  2. LOESTRIN 1.5/30 [Suspect]
     Indication: CONTRACEPTION
     Dosage: 30/1500UG, QD, ORAL
     Route: 048
     Dates: start: 19770101, end: 20070802

REACTIONS (9)
  - AMENORRHOEA [None]
  - BACTERIAL INFECTION [None]
  - FLANK PAIN [None]
  - FUNGAL INFECTION [None]
  - HEADACHE [None]
  - IRRITABILITY [None]
  - IRRITABLE BOWEL SYNDROME [None]
  - VERTIGO [None]
  - VULVOVAGINAL MYCOTIC INFECTION [None]
